FAERS Safety Report 6784067-1 (Version None)
Quarter: 2010Q2

REPORT INFORMATION
  Report Type: 
  Country: None (occurrence: None)
  Receive Date: 20100622
  Receipt Date: 20100611
  Transmission Date: 20101027
  Serious: Yes (Hospitalization)
  Sender: FDA-Public Use
  Company Number: US-JNJFOC-20100506499

PATIENT
  Age: 6 Year
  Sex: Female
  Weight: 27.22 kg

DRUGS (2)
  1. CHILDREN'S TYLENOL SUSPENSION [Suspect]
     Route: 048
  2. CHILDREN'S TYLENOL SUSPENSION [Suspect]
     Indication: PYREXIA
     Route: 048

REACTIONS (5)
  - DIARRHOEA [None]
  - MALAISE [None]
  - PYREXIA [None]
  - TRANSMISSION OF AN INFECTIOUS AGENT VIA A MEDICINAL PRODUCT [None]
  - VOMITING [None]
